FAERS Safety Report 8821276 (Version 1)
Quarter: 2012Q4

REPORT INFORMATION
  Report Type: 
  Country: US (occurrence: US)
  Receive Date: 20121002
  Receipt Date: 20121002
  Transmission Date: 20130627
  Serious: Yes (Other)
  Sender: FDA-Public Use
  Company Number: US-ALLERGAN-1213349US

PATIENT
  Age: 48 Year
  Sex: Female

DRUGS (1)
  1. ACZONE [Suspect]
     Indication: FOLLICULITIS
     Dosage: UNK
     Route: 061
     Dates: start: 20120906, end: 20120910

REACTIONS (2)
  - Throat tightness [Unknown]
  - Pruritus generalised [Unknown]
